FAERS Safety Report 7333290-6 (Version None)
Quarter: 2011Q1

REPORT INFORMATION
  Report Type: 
  Country: None (occurrence: None)
  Receive Date: 20110304
  Receipt Date: 20110221
  Transmission Date: 20110831
  Serious: Yes (Other)
  Sender: FDA-Public Use
  Company Number: US-ELI_LILLY_AND_COMPANY-US201101007167

PATIENT
  Sex: Male

DRUGS (8)
  1. CYMBALTA [Suspect]
     Indication: DEPRESSION
     Dosage: 30 MG, DAILY (1/D)
     Dates: start: 20090101
  2. CYMBALTA [Suspect]
     Dosage: 60 MG, DAILY (1/D)
     Dates: end: 20110117
  3. MOBIC [Concomitant]
     Indication: ARTHRALGIA
  4. ACTOS [Concomitant]
     Dosage: UNK, UNKNOWN
  5. INDOCIN [Concomitant]
     Indication: ARTHRALGIA
  6. NEXIUM [Concomitant]
     Dosage: UNK, UNKNOWN
  7. METFORMIN HCL [Concomitant]
     Dosage: UNK, UNKNOWN
  8. ALTACE [Concomitant]
     Dosage: UNK, UNKNOWN

REACTIONS (27)
  - SKIN HAEMORRHAGE [None]
  - HAEMORRHAGE [None]
  - HOSTILITY [None]
  - DIZZINESS [None]
  - RESTLESSNESS [None]
  - MUSCULOSKELETAL STIFFNESS [None]
  - SKIN EXFOLIATION [None]
  - MOOD ALTERED [None]
  - PETECHIAE [None]
  - FATIGUE [None]
  - TREMOR [None]
  - CONTUSION [None]
  - ANXIETY [None]
  - AGGRESSION [None]
  - DIARRHOEA [None]
  - DRUG INEFFECTIVE [None]
  - COMPULSIONS [None]
  - IRRITABILITY [None]
  - WEIGHT DECREASED [None]
  - VOMITING [None]
  - ASTHENIA [None]
  - URINE COLOUR ABNORMAL [None]
  - AMNESIA [None]
  - CHILLS [None]
  - AGITATION [None]
  - NAUSEA [None]
  - URINE OUTPUT DECREASED [None]
